FAERS Safety Report 5460948-6 (Version None)
Quarter: 2007Q3

REPORT INFORMATION
  Report Type: 
  Country: None (occurrence: None)
  Receive Date: 20070823
  Receipt Date: 20070614
  Transmission Date: 20080115
  Serious: No
  Sender: FDA-Public Use
  Company Number: SPV1-2007-03389

PATIENT

DRUGS (1)
  1. FOSRENOL [Suspect]
     Dosage: 1 G, 3X/DAY:TID, ORAL
     Route: 048

REACTIONS (1)
  - RASH [None]
